FAERS Safety Report 25760986 (Version 2)
Quarter: 2025Q3

REPORT INFORMATION
  Report Type: Spontaneous
  Country: AR (occurrence: AR)
  Receive Date: 20250904
  Receipt Date: 20250916
  Transmission Date: 20251021
  Serious: Yes (Other)
  Sender: SANOFI AVENTIS
  Company Number: AR-SA-2025SA264300

PATIENT
  Age: 43 Year
  Sex: Female

DRUGS (2)
  1. DUPIXENT [Suspect]
     Active Substance: DUPILUMAB
     Indication: Dermatitis atopic
     Dates: start: 202105, end: 2023
  2. UPADACITINIB [Suspect]
     Active Substance: UPADACITINIB

REACTIONS (2)
  - Multiple sclerosis [Unknown]
  - Acne [Unknown]
